FAERS Safety Report 12840283 (Version 4)
Quarter: 2017Q1

REPORT INFORMATION
  Report Type: Spontaneous
  Country: JP (occurrence: JP)
  Receive Date: 20161012
  Receipt Date: 20170106
  Transmission Date: 20170428
  Serious: Yes (Death, Life-Threatening, Hospitalization, Disabling, Other)
  Sender: FDA-Public Use
  Company Number: JP-GILEAD-2016-0236434AA

PATIENT
  Age: 64 Year
  Sex: Female
  Weight: 57.3 kg

DRUGS (3)
  1. BLOPRESS [Suspect]
     Active Substance: CANDESARTAN CILEXETIL
     Indication: HYPERTENSION
     Route: 048
  2. HARVONI [Suspect]
     Active Substance: LEDIPASVIR\SOFOSBUVIR
     Indication: CHRONIC HEPATITIS C
     Dosage: 1 DF, QD
     Route: 048
     Dates: start: 20160913, end: 20160930
  3. CONIEL [Suspect]
     Active Substance: BENIDIPINE HYDROCHLORIDE
     Indication: HYPERTENSION
     Route: 048

REACTIONS (16)
  - Gastrointestinal necrosis [Fatal]
  - Disseminated intravascular coagulation [Fatal]
  - Nephrogenic diabetes insipidus [Unknown]
  - Renal impairment [Unknown]
  - Septic shock [Fatal]
  - Cardio-respiratory arrest [Recovered/Resolved]
  - Vomiting [Unknown]
  - Intestinal ischaemia [Fatal]
  - Cardiac arrest [Fatal]
  - Hypotension [Unknown]
  - Dehydration [Unknown]
  - Intestinal perforation [Fatal]
  - Fungal test positive [Unknown]
  - Diabetic ketoacidosis [Fatal]
  - Adrenal insufficiency [Unknown]
  - Volume blood decreased [Unknown]

NARRATIVE: CASE EVENT DATE: 2016
